FAERS Safety Report 4342457-0 (Version None)
Quarter: 2004Q2

REPORT INFORMATION
  Report Type: 
  Country: None (occurrence: None)
  Receive Date: 20040413
  Receipt Date: 20040401
  Transmission Date: 20050107
  Serious: Yes (Death)
  Sender: FDA-Public Use
  Company Number: 2004AP01727

PATIENT
  Age: 77 Year
  Sex: Male

DRUGS (16)
  1. IRESSA [Suspect]
     Indication: LUNG NEOPLASM MALIGNANT
     Dosage: 250 MG DAILY PO
     Route: 048
     Dates: start: 20040309
  2. IRESSA [Suspect]
     Indication: SQUAMOUS CELL CARCINOMA
     Dosage: 250 MG DAILY PO
     Route: 048
     Dates: start: 20040309
  3. MAGNESIUM OXIDE [Concomitant]
  4. MUCOSTA [Concomitant]
  5. LEPETAN [Concomitant]
  6. SENNOSIDE [Concomitant]
  7. ENSURE [Concomitant]
  8. DIPYRIDAMOLE [Concomitant]
  9. ISOTONIC SODIUM CHLORIDE SOLUTION [Concomitant]
  10. BISOLVON [Concomitant]
  11. ALEVAIRE [Concomitant]
  12. RADIATION THERAPY [Concomitant]
  13. CYCLOPHOSPHAMIDE [Concomitant]
  14. DOXORUBICIN HYDROCHLORIDE [Concomitant]
  15. VINCRISTINE [Concomitant]
  16. PREDNISOLONE [Concomitant]

REACTIONS (6)
  - CARDIO-RESPIRATORY ARREST [None]
  - CYANOSIS [None]
  - PALLOR [None]
  - PNEUMONIA [None]
  - STOOLS WATERY [None]
  - SUFFOCATION FEELING [None]
